FAERS Safety Report 22142895 (Version 1)
Quarter: 2023Q1

REPORT INFORMATION
  Report Type: Spontaneous
  Country: ES (occurrence: ES)
  Receive Date: 20230327
  Receipt Date: 20230327
  Transmission Date: 20230418
  Serious: Yes (Other)
  Sender: FDA-Public Use
  Company Number: None

PATIENT
  Age: 82 Year
  Sex: Male
  Weight: 62 kg

DRUGS (11)
  1. PACLITAXEL [Suspect]
     Active Substance: PACLITAXEL
     Indication: Neoplasm malignant
     Dosage: CYCLE OF THREE WEEKS WITH CHEMO AND ONE WEEK OF REST?UNIT DOSE - 80 MG/KG
     Dates: start: 20201214
  2. CARBOPLATIN [Suspect]
     Active Substance: CARBOPLATIN
     Indication: Neoplasm malignant
     Dosage: CYCLE OF THREE WEEKS WITH CHEMO AND ONE WEEK OF REST?UNIT DOSE 200 MG
     Dates: start: 20201214
  3. MORPHINE SULFATE [Suspect]
     Active Substance: MORPHINE SULFATE
     Indication: Product used for unknown indication
     Dosage: FORM OF ADMIN PROLONGED RELEASE TABLET
     Dates: start: 20210219
  4. COMIRNATY [Suspect]
     Active Substance: TOZINAMERAN
     Indication: COVID-19 immunisation
     Dosage: 1 DOSE ADMINISTERED - PLACE OF ADMINISTRATION: LEFT ARM
     Dates: start: 20210225, end: 20210225
  5. LORAZEPAM [Concomitant]
     Active Substance: LORAZEPAM
     Indication: Product used for unknown indication
     Dates: start: 20210219
  6. NEXIUM [Concomitant]
     Active Substance: ESOMEPRAZOLE MAGNESIUM
     Indication: Product used for unknown indication
     Dosage: FORM OF ADMIN GASTRO RESISTANT TABLET
     Dates: start: 20160318
  7. LINAGLIPTIN [Concomitant]
     Active Substance: LINAGLIPTIN
     Indication: Product used for unknown indication
     Dosage: FORM OF ADMIN FILM COATED TABLET
     Dates: start: 20160729
  8. COLCHICINA SEID 1 mg  TABLETS [Concomitant]
     Indication: Product used for unknown indication
     Dates: start: 20170209
  9. BALZAK PLUS 40 mg/5 mg/12,5 mg FILM-COATED TABLETS [Concomitant]
     Indication: Product used for unknown indication
     Dosage: FORM OF ADMIN FILM COATED TABLET
     Dates: start: 20160125
  10. HEMOVAS 600 MG PROLONGED-RELEASE TABLETS [Concomitant]
     Indication: Product used for unknown indication
     Dosage: FORM OF ADMIN PROLONGED RELEASE TABLET
     Dates: start: 20181010
  11. ATORVASTATIN CALCIUM [Concomitant]
     Active Substance: ATORVASTATIN CALCIUM
     Indication: Product used for unknown indication
     Dates: start: 20200514

REACTIONS (1)
  - Visual impairment [Not Recovered/Not Resolved]

NARRATIVE: CASE EVENT DATE: 20210227
